FAERS Safety Report 6549556-3 (Version None)
Quarter: 2010Q1

REPORT INFORMATION
  Report Type: 
  Country: None (occurrence: None)
  Receive Date: 20100119
  Receipt Date: 20100104
  Transmission Date: 20100710
  Serious: Yes (Disabling)
  Sender: FDA-Public Use
  Company Number: DSA_31811_2008

PATIENT
  Age: 72 Year
  Sex: Male

DRUGS (6)
  1. DILTIAZEM HCL [Suspect]
     Indication: DRUG USE FOR UNKNOWN INDICATION
     Dosage: (DF)
     Dates: start: 20080220, end: 20080307
  2. LOSARTAN (LOSARTAN) [Suspect]
     Indication: CEREBROVASCULAR DISORDER
     Dosage: (50 MG QD)
     Dates: start: 20080205, end: 20080307
  3. SIMVASTATIN [Suspect]
     Indication: ATRIAL FIBRILLATION
     Dosage: (40 MG QD)
     Dates: start: 20080205, end: 20080307
  4. WARFARIN SODIUM [Suspect]
     Indication: ATRIAL FIBRILLATION
     Dosage: (3 MG QD)
     Dates: start: 20090225
  5. ACETYLSALICYLIC ACID [Concomitant]
  6. LERCANIDIPINE [Concomitant]

REACTIONS (2)
  - EYE INFLAMMATION [None]
  - RASH GENERALISED [None]
